FAERS Safety Report 6296915-2 (Version None)
Quarter: 2009Q3

REPORT INFORMATION
  Report Type: 
  Country: None (occurrence: None)
  Receive Date: 20090804
  Receipt Date: 20090727
  Transmission Date: 20100115
  Serious: Yes (Hospitalization)
  Sender: FDA-Public Use
  Company Number: FR-ABBOTT-09P-056-0587530-00

PATIENT
  Age: 30 Year
  Sex: Male

DRUGS (6)
  1. DEPAKOTE [Suspect]
     Indication: DRUG USE FOR UNKNOWN INDICATION
     Dosage: 500MG OD
     Route: 048
     Dates: start: 20070101, end: 20090402
  2. CLOZAPINE [Suspect]
     Indication: DRUG USE FOR UNKNOWN INDICATION
     Route: 048
     Dates: start: 20080901, end: 20081201
  3. CLOZAPINE [Suspect]
     Dosage: 300 MG DAILY
     Route: 048
     Dates: start: 20090101, end: 20090326
  4. CLOZAPINE [Suspect]
     Dosage: 400 MG DAILY
     Route: 048
     Dates: start: 20090327, end: 20090408
  5. CLOZAPINE [Suspect]
     Dosage: 300 MG DAILY
     Route: 048
     Dates: start: 20090409, end: 20090409
  6. CLOZAPINE [Suspect]
     Dosage: 200 MG DAILY
     Route: 048
     Dates: start: 20090410, end: 20090414

REACTIONS (4)
  - CYTOLYTIC HEPATITIS [None]
  - FATIGUE [None]
  - GAMMA-GLUTAMYLTRANSFERASE INCREASED [None]
  - HEPATOCELLULAR INJURY [None]
